FAERS Safety Report 4438984-8 (Version None)
Quarter: 2004Q3

REPORT INFORMATION
  Report Type: 
  Country: None (occurrence: None)
  Receive Date: 20040830
  Receipt Date: 20040816
  Transmission Date: 20050211
  Serious: Yes (Hospitalization)
  Sender: FDA-Public Use
  Company Number: 2004055736

PATIENT
  Age: 68 Year
  Sex: Female

DRUGS (5)
  1. SULPERAZONE (CEFOPERAZONE, SULBACTAM) [Suspect]
     Indication: SEPSIS
     Dosage: 9 GRAM (3 GRAM, 3 IN 1 D)
  2. AZTREONAM (AZTREONAM) [Concomitant]
  3. CIPROFLOXACIN HCL [Concomitant]
  4. ALL OTHER THERAPEUTIC PRODUCTS (ALL OTHER THERAPEUTIC PRODUCTS) [Concomitant]
  5. TRAMADOL HCL [Concomitant]

REACTIONS (1)
  - RASH ERYTHEMATOUS [None]
